FAERS Safety Report 16977060 (Version 1)
Quarter: 2019Q4

REPORT INFORMATION
  Report Type: Spontaneous
  Country: US (occurrence: US)
  Receive Date: 20191030
  Receipt Date: 20191030
  Transmission Date: 20200122
  Serious: Yes (Hospitalization)
  Sender: FDA-Public Use
  Company Number: US-TEVA-2019-US-1129811

PATIENT
  Age: 50 Year
  Sex: Female

DRUGS (1)
  1. JUNEL [Suspect]
     Active Substance: ETHINYL ESTRADIOL\NORETHINDRONE ACETATE
     Indication: ACNE
     Dosage: DOSE STRENGTH: 1 MG/20 MCG
     Route: 065
     Dates: start: 20191003, end: 20191020

REACTIONS (4)
  - Hypoaesthesia [Recovered/Resolved]
  - Cerebral venous thrombosis [Recovered/Resolved]
  - Product use in unapproved indication [Unknown]
  - Head discomfort [Recovered/Resolved]

NARRATIVE: CASE EVENT DATE: 201910
